FAERS Safety Report 24566389 (Version 1)
Quarter: 2024Q4

REPORT INFORMATION
  Report Type: Spontaneous
  Country: US (occurrence: US)
  Receive Date: 20241030
  Receipt Date: 20241030
  Transmission Date: 20250114
  Serious: Yes (Life-Threatening, Hospitalization, Other)
  Sender: GRANULES PHARMACEUTICALS INC
  Company Number: US-GRANULES-US-2024GRALIT00513

PATIENT
  Age: 31 Year
  Sex: Male

DRUGS (1)
  1. ACETAMINOPHEN [Suspect]
     Active Substance: ACETAMINOPHEN
     Indication: Product used for unknown indication
     Route: 048

REACTIONS (1)
  - Toxic encephalopathy [Recovering/Resolving]
